FAERS Safety Report 6649733-7 (Version None)
Quarter: 2010Q1

REPORT INFORMATION
  Report Type: 
  Country: None (occurrence: None)
  Receive Date: 20100324
  Receipt Date: 20100324
  Transmission Date: 20100710
  Serious: No
  Sender: FDA-Public Use
  Company Number: None

PATIENT
  Age: 50 Year
  Sex: Male
  Weight: 34.9497 kg

DRUGS (1)
  1. ENOXAPARIN SODIUM [Suspect]
     Dosage: 40 MG EVERY DAY SQ
     Route: 058
     Dates: start: 20090918, end: 20090920

REACTIONS (1)
  - HAEMORRHAGE [None]
